FAERS Safety Report 9851845 (Version 1)
Quarter: 2014Q1

REPORT INFORMATION
  Report Type: Spontaneous
  Country: US (occurrence: None)
  Receive Date: 20140127
  Receipt Date: 20140127
  Transmission Date: 20141002
  Serious: Yes (Other)
  Sender: FDA-Public Use
  Company Number: 2013US-74840

PATIENT
  Age: 25 Year
  Sex: Female

DRUGS (2)
  1. ABSORICA [Suspect]
     Indication: PRODUCT USED FOR UNKNOWN INDICATION
     Dosage: 40 MG, QD, UNKNOWN
     Dates: start: 20120804, end: 20131024
  2. CLARAVIS [Suspect]
     Indication: PRODUCT USED FOR UNKNOWN INDICATION
     Dosage: UNKNOWN
     Dates: start: 20120804, end: 20131024

REACTIONS (2)
  - Exposure during pregnancy [None]
  - Vaginal haemorrhage [None]
